FAERS Safety Report 7883650-X (Version None)
Quarter: 2011Q4

REPORT INFORMATION
  Report Type: 
  Country: None (occurrence: None)
  Receive Date: 20111031
  Receipt Date: 20111019
  Transmission Date: 20120403
  Serious: Yes (Hospitalization)
  Sender: FDA-Public Use
  Company Number: US-2011-10427

PATIENT
  Age: 49 Year
  Sex: Male

DRUGS (4)
  1. FOLIC ACID [Concomitant]
  2. ALLOPURINOL [Concomitant]
  3. OPC-41061 (TOLVAPTAN) TABLET, 15MG MILLIGRAM(S) [Suspect]
     Indication: CONGENITAL CYSTIC KIDNEY DISEASE
     Dosage: 45/15 SPLIT DOSE, ORAL
     Route: 048
     Dates: start: 20110301
  4. DOXYCLIN (DOXYCYCLINE HYCLATE) [Concomitant]

REACTIONS (11)
  - PLATELET COUNT DECREASED [None]
  - EOSINOPHIL PERCENTAGE INCREASED [None]
  - GOUT [None]
  - HYPERURICAEMIA [None]
  - FOLATE DEFICIENCY [None]
  - BLOOD POTASSIUM INCREASED [None]
  - PROTEIN TOTAL INCREASED [None]
  - POLYNEUROPATHY [None]
  - MEAN CELL HAEMOGLOBIN DECREASED [None]
  - MEAN CELL HAEMOGLOBIN CONCENTRATION DECREASED [None]
  - ERYTHEMA MIGRANS [None]
